FAERS Safety Report 5597708-1 (Version None)
Quarter: 2008Q1

REPORT INFORMATION
  Report Type: 
  Country: None (occurrence: None)
  Receive Date: 20080121
  Receipt Date: 20080110
  Transmission Date: 20080703
  Serious: Yes (Death)
  Sender: FDA-Public Use
  Company Number: TR-ELI_LILLY_AND_COMPANY-TR200801002420

PATIENT
  Age: 51 Year
  Sex: Female
  Weight: 53 kg

DRUGS (4)
  1. HUMALOG [Suspect]
     Dosage: UNK UNK, UNKNOWN
     Route: 058
     Dates: start: 20071101
  2. LANTUS [Concomitant]
     Dosage: UNK UNK, UNKNOWN
     Route: 058
     Dates: start: 20070901
  3. MAXALJIN [Concomitant]
     Indication: ANALGESIC THERAPY
     Dosage: 2-3 TABLETS PER DAY
     Route: 048
     Dates: start: 20070101
  4. PROTONIX [Concomitant]
     Indication: GASTRIC DISORDER
     Dosage: 1 D/F, 2/D
     Route: 048
     Dates: start: 20070101

REACTIONS (1)
  - NEOPLASM MALIGNANT [None]
